FAERS Safety Report 9566941 (Version 1)
Quarter: 2013Q3

REPORT INFORMATION
  Report Type: Spontaneous
  Country: US (occurrence: US)
  Receive Date: 20130930
  Receipt Date: 20130930
  Transmission Date: 20140515
  Serious: No
  Sender: FDA-Public Use
  Company Number: US-AMGEN-USASP2012060683

PATIENT
  Sex: Female

DRUGS (15)
  1. ENBREL [Suspect]
     Indication: RHEUMATOID ARTHRITIS
     Dosage: UNK
     Dates: start: 2012, end: 2012
  2. ASPIRIN [Concomitant]
     Dosage: UNK
  3. CALCIUM D                          /00944201/ [Concomitant]
     Dosage: UNK
  4. ALDACTONE                          /00006201/ [Concomitant]
     Dosage: UNK
  5. FOLIC ACID [Concomitant]
     Dosage: UNK
  6. LOPRESSOR [Concomitant]
     Dosage: UNK
  7. ZOCOR [Concomitant]
     Dosage: UNK
  8. STOOL SOFTENER [Concomitant]
     Dosage: UNK
  9. PLAQUENIL                          /00072602/ [Concomitant]
     Dosage: UNK
  10. ZANTAC [Concomitant]
     Dosage: UNK
  11. VITAMIN D3 [Concomitant]
     Dosage: UNK
  12. MULTIVITAMIN                       /00097801/ [Concomitant]
     Dosage: UNK
  13. ULTRACET [Concomitant]
     Dosage: UNK
  14. ZOFRAN                             /00955301/ [Concomitant]
     Dosage: UNK
  15. ZESTRIL [Concomitant]
     Dosage: UNK

REACTIONS (3)
  - Nausea [Unknown]
  - Fatigue [Unknown]
  - Drug ineffective [Unknown]
